FAERS Safety Report 8101779-8 (Version None)
Quarter: 2012Q1

REPORT INFORMATION
  Report Type: 
  Country: None (occurrence: None)
  Receive Date: 20120131
  Receipt Date: 20120119
  Transmission Date: 20120608
  Serious: Yes (Other)
  Sender: FDA-Public Use
  Company Number: PHHY2012AR005979

PATIENT
  Sex: Female

DRUGS (1)
  1. DIOVAN HCT [Suspect]
     Indication: BLOOD PRESSURE
     Dosage: 80/12.5 MG DAILY
     Dates: start: 20110801

REACTIONS (2)
  - HERPES VIRUS INFECTION [None]
  - VIITH NERVE PARALYSIS [None]
